FAERS Safety Report 9182367 (Version 1)
Quarter: 2012Q4

REPORT INFORMATION
  Report Type: 
  Country: CA (occurrence: CA)
  Receive Date: 20121030
  Receipt Date: 20121030
  Transmission Date: 20130627
  Serious: Yes (Hospitalization)
  Sender: FDA-Public Use
  Company Number: CA-BRISTOL-MYERS SQUIBB COMPANY-17057753

PATIENT
  Age: 54 Year
  Sex: Female
  Weight: 83 kg

DRUGS (1)
  1. YERVOY [Suspect]
     Indication: METASTATIC MALIGNANT MELANOMA
     Dosage: Last inf:26Sep12;3rd inf(17Oct12) is cancelled.
     Route: 042
     Dates: start: 20120905

REACTIONS (2)
  - Hepatic enzyme increased [Unknown]
  - Abdominal pain lower [Unknown]
